FAERS Safety Report 7243541-4 (Version None)
Quarter: 2011Q1

REPORT INFORMATION
  Report Type: 
  Country: None (occurrence: None)
  Receive Date: 20110125
  Receipt Date: 20101216
  Transmission Date: 20110831
  Serious: Yes (Death, Hospitalization, Other)
  Sender: FDA-Public Use
  Company Number: US-CELGENEUS-163-21880-10090421

PATIENT
  Age: 70 Year
  Sex: Male
  Weight: 67.192 kg

DRUGS (36)
  1. ACETAMINOPHEN W/ CODEINE [Concomitant]
     Indication: PAIN
     Dosage: 300-30MG
     Route: 048
  2. TINZAPARIN [Concomitant]
     Dosage: 12,000 UNITS/ML
     Route: 058
  3. SENNA [Concomitant]
     Route: 048
  4. ASPIRIN [Concomitant]
     Route: 048
  5. POTASSIUM CHLORIDE [Concomitant]
     Route: 065
  6. LABETALOL HCL [Concomitant]
     Route: 051
  7. INSULIN [Concomitant]
     Route: 065
  8. GOSERELIN ACETATE [Concomitant]
     Route: 058
  9. OLANZAPINE [Concomitant]
     Route: 048
  10. METOCLOPRAMIDE [Concomitant]
     Route: 051
  11. COMPAZINE [Concomitant]
     Route: 065
  12. NYSTATIN [Concomitant]
     Route: 048
  13. IPRATROPIUM BROMIDE [Concomitant]
     Route: 055
  14. TAXOTERE [Suspect]
     Indication: PROSTATE CANCER
     Route: 051
     Dates: start: 20100723
  15. DEXAMETHASONE [Concomitant]
     Route: 065
     Dates: start: 20101001
  16. VITAMIN K TAB [Concomitant]
     Route: 065
  17. ALBUTEROL [Concomitant]
     Route: 055
  18. DEXAMETHASONE [Concomitant]
     Route: 048
  19. DOCUSATE SODIUM [Concomitant]
     Route: 048
  20. SIMVASTATIN [Concomitant]
     Route: 048
  21. MAGNESIUM SULFATE [Concomitant]
     Route: 051
  22. FENTANYL CITRATE [Concomitant]
     Route: 051
  23. REVLIMID [Suspect]
     Indication: PROSTATE CANCER
     Route: 048
     Dates: start: 20100723
  24. ALBUTEROL [Concomitant]
     Indication: WHEEZING
     Route: 055
  25. DEXAMETHASONE [Concomitant]
     Route: 065
     Dates: start: 20101001
  26. FUROSEMIDE [Concomitant]
     Route: 051
  27. ENOXAPARIN [Concomitant]
     Route: 058
  28. SUCRALFATE [Concomitant]
     Route: 048
  29. DOCUSATE SODIUM [Concomitant]
     Route: 048
  30. FUROSEMIDE [Concomitant]
     Route: 048
  31. POTASSIUM CHLORIDE [Concomitant]
     Route: 048
  32. PREDNISONE [Concomitant]
     Route: 048
  33. SPIRIVA [Concomitant]
     Route: 065
  34. ZOLEDRONIC ACID [Concomitant]
     Dosage: 4MG/5ML
     Route: 051
  35. OLANZAPINE [Concomitant]
     Route: 048
  36. GLUCAGON [Concomitant]
     Route: 030

REACTIONS (7)
  - SEPSIS [None]
  - PULMONARY EMBOLISM [None]
  - PNEUMONIA [None]
  - DEEP VEIN THROMBOSIS [None]
  - SPINAL CORD COMPRESSION [None]
  - ARTERIAL THROMBOSIS LIMB [None]
  - PROSTATE CANCER [None]
